FAERS Safety Report 9262687 (Version 1)
Quarter: 2013Q2

REPORT INFORMATION
  Report Type: Spontaneous
  Country: BR (occurrence: None)
  Receive Date: 20130426
  Receipt Date: 20130426
  Transmission Date: 20140414
  Serious: Yes (Other)
  Sender: FDA-Public Use
  Company Number: BR13001176

PATIENT
  Age: 33 Year
  Sex: Female
  Weight: 38 kg

DRUGS (4)
  1. DIFFERIN [Suspect]
     Indication: PIGMENTATION DISORDER
     Route: 061
     Dates: start: 20130403, end: 20130319
  2. DIFFERIN [Suspect]
     Indication: CHLOASMA
     Route: 061
     Dates: start: 20130403, end: 20130319
  3. DERMOTIVIN ORIGINAL [Concomitant]
  4. ROC MINESOL [Concomitant]

REACTIONS (4)
  - Erythema [None]
  - Skin exfoliation [None]
  - Eyelid oedema [None]
  - Face oedema [None]
